FAERS Safety Report 18775319 (Version 1)
Quarter: 2021Q1

REPORT INFORMATION
  Report Type: Spontaneous
  Country: US (occurrence: US)
  Receive Date: 20210122
  Receipt Date: 20210122
  Transmission Date: 20210419
  Serious: Yes (Death, Other)
  Sender: FDA-Public Use
  Company Number: US-ROCHE-2750355

PATIENT
  Sex: Male

DRUGS (15)
  1. NUCYNTA [Suspect]
     Active Substance: TAPENTADOL HYDROCHLORIDE
     Indication: BACK PAIN
     Route: 048
  2. ZOHYDRO [Concomitant]
     Active Substance: HYDROCODONE BITARTRATE
  3. NUCYNTA [Suspect]
     Active Substance: TAPENTADOL HYDROCHLORIDE
     Route: 048
  4. HEROIN [Suspect]
     Active Substance: DIAMORPHINE
     Indication: PRODUCT USED FOR UNKNOWN INDICATION
     Route: 065
  5. TRAMADOL HCL [Concomitant]
     Active Substance: TRAMADOL HYDROCHLORIDE
     Dates: start: 20181211
  6. NUCYNTA [Suspect]
     Active Substance: TAPENTADOL HYDROCHLORIDE
     Route: 065
     Dates: start: 20170628, end: 20170717
  7. NUCYNTA [Suspect]
     Active Substance: TAPENTADOL HYDROCHLORIDE
     Route: 065
     Dates: start: 20180709
  8. FENTANYL. [Suspect]
     Active Substance: FENTANYL
     Indication: PRODUCT USED FOR UNKNOWN INDICATION
     Route: 065
  9. VALIUM [Suspect]
     Active Substance: DIAZEPAM
     Indication: PRODUCT USED FOR UNKNOWN INDICATION
     Route: 065
  10. NUCYNTA [Suspect]
     Active Substance: TAPENTADOL HYDROCHLORIDE
     Dosage: EVERY 6?8 HOURS AS NEEDED
     Route: 065
     Dates: start: 20170718, end: 20180708
  11. NUCYNTA [Suspect]
     Active Substance: TAPENTADOL HYDROCHLORIDE
     Route: 065
     Dates: start: 20170330, end: 2017
  12. TIZANIDINE. [Concomitant]
     Active Substance: TIZANIDINE
  13. KETOROLAC [Concomitant]
     Active Substance: KETOROLAC TROMETHAMINE
     Dates: start: 20170808
  14. NUCYNTA [Suspect]
     Active Substance: TAPENTADOL HYDROCHLORIDE
     Route: 065
     Dates: start: 2017, end: 20170627
  15. TRAMADOL HCL [Concomitant]
     Active Substance: TRAMADOL HYDROCHLORIDE
     Dates: start: 20171122

REACTIONS (16)
  - Muscle tightness [Unknown]
  - Intervertebral disc protrusion [Unknown]
  - Drug use disorder [Not Recovered/Not Resolved]
  - Emotional distress [Unknown]
  - Injury [Unknown]
  - Anxiety [Unknown]
  - Drug tolerance [Not Recovered/Not Resolved]
  - Withdrawal syndrome [Not Recovered/Not Resolved]
  - Accidental overdose [Fatal]
  - Gastroenteritis [Unknown]
  - Drug dependence [Not Recovered/Not Resolved]
  - Weight decreased [Unknown]
  - Epilepsy [Not Recovered/Not Resolved]
  - Mental status changes [Unknown]
  - Muscular weakness [Unknown]
  - Neuralgia [Unknown]
